FAERS Safety Report 25496243 (Version 2)
Quarter: 2025Q3

REPORT INFORMATION
  Report Type: Spontaneous
  Country: CA (occurrence: CA)
  Receive Date: 20250630
  Receipt Date: 20250715
  Transmission Date: 20251020
  Serious: Yes (Death, Life-Threatening, Hospitalization, Disabling, Congenital Anomaly, Other)
  Sender: PURDUE
  Company Number: CA-PURDUE-USA-2025-0318543

PATIENT
  Age: 96 Year
  Sex: Female

DRUGS (164)
  1. OXYCODONE HYDROCHLORIDE [Suspect]
     Active Substance: OXYCODONE HYDROCHLORIDE
     Indication: Rheumatoid arthritis
     Route: 065
  2. BUTRANS [Suspect]
     Active Substance: BUPRENORPHINE
     Indication: Product used for unknown indication
     Route: 065
  3. BUPRENORPHINE [Suspect]
     Active Substance: BUPRENORPHINE
     Indication: Product used for unknown indication
     Route: 065
  4. HYDROMORPHONE HYDROCHLORIDE [Suspect]
     Active Substance: HYDROMORPHONE HYDROCHLORIDE
     Indication: Product used for unknown indication
     Route: 065
  5. TRAMADOL HYDROCHLORIDE [Suspect]
     Active Substance: TRAMADOL HYDROCHLORIDE
     Indication: Product used for unknown indication
     Route: 065
  6. ACETAMINOPHEN\CODEINE PHOSPHATE [Suspect]
     Active Substance: ACETAMINOPHEN\CODEINE PHOSPHATE
     Indication: Product used for unknown indication
     Route: 065
  7. ADALIMUMAB [Suspect]
     Active Substance: ADALIMUMAB
     Indication: Rheumatoid arthritis
     Route: 065
  8. ADALIMUMAB [Suspect]
     Active Substance: ADALIMUMAB
     Route: 058
  9. ALENDRONATE SODIUM [Suspect]
     Active Substance: ALENDRONATE SODIUM
     Indication: Rheumatoid arthritis
     Route: 048
  10. ALENDRONATE SODIUM [Suspect]
     Active Substance: ALENDRONATE SODIUM
     Route: 065
  11. ALENDRONATE SODIUM\CHOLECALCIFEROL [Suspect]
     Active Substance: ALENDRONATE SODIUM\CHOLECALCIFEROL
     Indication: Rheumatoid arthritis
     Route: 065
  12. APREMILAST [Suspect]
     Active Substance: APREMILAST
     Indication: Rheumatoid arthritis
     Route: 065
  13. APREMILAST [Suspect]
     Active Substance: APREMILAST
     Route: 065
  14. ATOMOXETINE HYDROCHLORIDE [Suspect]
     Active Substance: ATOMOXETINE HYDROCHLORIDE
     Indication: Rheumatoid arthritis
     Route: 065
  15. ATOMOXETINE HYDROCHLORIDE [Suspect]
     Active Substance: ATOMOXETINE HYDROCHLORIDE
     Route: 065
  16. BERINERT [Suspect]
     Active Substance: HUMAN C1-ESTERASE INHIBITOR
     Indication: Product used for unknown indication
     Route: 065
  17. BETAMETHASONE [Suspect]
     Active Substance: BETAMETHASONE
     Indication: Product used for unknown indication
     Route: 065
  18. BOTULINUM TOXIN TYPE A [Suspect]
     Active Substance: BOTULINUM TOXIN TYPE A
     Indication: Product used for unknown indication
     Route: 065
  19. CALCIUM ASCORBATE [Suspect]
     Active Substance: CALCIUM ASCORBATE
     Indication: Product used for unknown indication
     Route: 065
  20. CALCIUM GLUBIONATE [Suspect]
     Active Substance: CALCIUM GLUBIONATE
     Indication: Product used for unknown indication
     Route: 065
  21. CALCIUM LACTATE [Suspect]
     Active Substance: CALCIUM LACTATE
     Indication: Product used for unknown indication
     Route: 065
  22. CANDESARTAN [Suspect]
     Active Substance: CANDESARTAN
     Indication: Migraine
     Route: 048
  23. CELECOXIB [Suspect]
     Active Substance: CELECOXIB
     Indication: Product used for unknown indication
     Route: 065
  24. CELECOXIB [Suspect]
     Active Substance: CELECOXIB
     Route: 065
  25. CELECOXIB [Suspect]
     Active Substance: CELECOXIB
     Route: 065
  26. CERTOLIZUMAB PEGOL [Suspect]
     Active Substance: CERTOLIZUMAB PEGOL
     Indication: Rheumatoid arthritis
     Route: 058
  27. CERTOLIZUMAB PEGOL [Suspect]
     Active Substance: CERTOLIZUMAB PEGOL
     Indication: Psoriasis
     Route: 058
  28. CERTOLIZUMAB PEGOL [Suspect]
     Active Substance: CERTOLIZUMAB PEGOL
     Route: 065
  29. CETIRIZINE HYDROCHLORIDE [Suspect]
     Active Substance: CETIRIZINE HYDROCHLORIDE
     Indication: Rheumatoid arthritis
     Route: 065
  30. CETIRIZINE HYDROCHLORIDE [Suspect]
     Active Substance: CETIRIZINE HYDROCHLORIDE
     Indication: Off label use
     Route: 065
  31. CETIRIZINE HYDROCHLORIDE [Suspect]
     Active Substance: CETIRIZINE HYDROCHLORIDE
     Route: 065
  32. CETIRIZINE HYDROCHLORIDE [Suspect]
     Active Substance: CETIRIZINE HYDROCHLORIDE
     Route: 048
  33. CETIRIZINE HYDROCHLORIDE [Suspect]
     Active Substance: CETIRIZINE HYDROCHLORIDE
     Route: 048
  34. CHLORHEXIDINE GLUCONATE [Suspect]
     Active Substance: CHLORHEXIDINE GLUCONATE
     Indication: Rheumatoid arthritis
     Route: 065
  35. CHOLECALCIFEROL [Suspect]
     Active Substance: CHOLECALCIFEROL
     Indication: Rheumatoid arthritis
     Route: 065
  36. CORTISONE ACETATE [Suspect]
     Active Substance: CORTISONE ACETATE
     Indication: Rheumatoid arthritis
     Route: 065
  37. COSENTYX [Suspect]
     Active Substance: SECUKINUMAB
     Indication: Rheumatoid arthritis
     Route: 065
  38. COSENTYX [Suspect]
     Active Substance: SECUKINUMAB
     Indication: Psoriatic arthropathy
  39. CYCLOBENZAPRINE [Suspect]
     Active Substance: CYCLOBENZAPRINE
     Indication: Rheumatoid arthritis
     Route: 065
  40. CYCLOBENZAPRINE [Suspect]
     Active Substance: CYCLOBENZAPRINE
     Route: 065
  41. DESOXIMETASONE [Suspect]
     Active Substance: DESOXIMETASONE
     Indication: Rheumatoid arthritis
     Route: 058
  42. DESOXIMETASONE [Suspect]
     Active Substance: DESOXIMETASONE
     Route: 048
  43. DESOXIMETASONE [Suspect]
     Active Substance: DESOXIMETASONE
     Route: 065
  44. DESOXIMETASONE [Suspect]
     Active Substance: DESOXIMETASONE
     Route: 048
  45. DICLOFENAC DIETHYLAMINE [Suspect]
     Active Substance: DICLOFENAC DIETHYLAMINE
     Indication: Rheumatoid arthritis
     Route: 065
  46. DICLOFENAC POTASSIUM [Suspect]
     Active Substance: DICLOFENAC POTASSIUM
     Indication: Product used for unknown indication
     Route: 065
  47. DICLOFENAC SODIUM [Suspect]
     Active Substance: DICLOFENAC SODIUM
     Indication: Product used for unknown indication
     Route: 065
  48. DICLOFENAC SODIUM [Suspect]
     Active Substance: DICLOFENAC SODIUM
     Route: 058
  49. DICLOFENAC SODIUM [Suspect]
     Active Substance: DICLOFENAC SODIUM
     Route: 065
  50. DOMPERIDONE MALEATE [Suspect]
     Active Substance: DOMPERIDONE MALEATE
     Indication: Product used for unknown indication
     Route: 065
  51. ERENUMAB [Suspect]
     Active Substance: ERENUMAB
     Indication: Migraine
     Route: 065
  52. ETANERCEPT [Suspect]
     Active Substance: ETANERCEPT
     Indication: Product used for unknown indication
     Route: 058
  53. ETANERCEPT [Suspect]
     Active Substance: ETANERCEPT
     Route: 058
  54. FINACEA [Suspect]
     Active Substance: AZELAIC ACID
     Indication: Product used for unknown indication
     Route: 065
  55. FLUMETHASONE [Suspect]
     Active Substance: FLUMETHASONE
     Indication: Product used for unknown indication
     Route: 058
  56. FOLIC ACID [Suspect]
     Active Substance: FOLIC ACID
     Indication: Rheumatoid arthritis
     Route: 065
  57. FOLIC ACID [Suspect]
     Active Substance: FOLIC ACID
     Route: 065
  58. FOLIC ACID [Suspect]
     Active Substance: FOLIC ACID
     Route: 065
  59. FOLIC ACID [Suspect]
     Active Substance: FOLIC ACID
     Route: 065
  60. FOLIC ACID [Suspect]
     Active Substance: FOLIC ACID
     Route: 065
  61. FOLIC ACID [Suspect]
     Active Substance: FOLIC ACID
     Route: 065
  62. FOLIC ACID [Suspect]
     Active Substance: FOLIC ACID
     Route: 065
  63. FOLIC ACID [Suspect]
     Active Substance: FOLIC ACID
     Route: 048
  64. GOLD [Suspect]
     Active Substance: GOLD
     Indication: Rheumatoid arthritis
     Route: 065
  65. GOLD [Suspect]
     Active Substance: GOLD
     Route: 030
  66. GOLIMUMAB [Suspect]
     Active Substance: GOLIMUMAB
     Indication: Rheumatoid arthritis
     Route: 058
  67. GOLIMUMAB [Suspect]
     Active Substance: GOLIMUMAB
     Indication: Prostatic specific antigen
  68. HYDROCORTISONE ACETATE [Suspect]
     Active Substance: HYDROCORTISONE ACETATE
     Indication: Rheumatoid arthritis
     Route: 065
  69. HYDROXYCHLOROQUINE SULFATE [Suspect]
     Active Substance: HYDROXYCHLOROQUINE SULFATE
     Indication: Rheumatoid arthritis
     Route: 048
  70. HYDROXYCHLOROQUINE SULFATE [Suspect]
     Active Substance: HYDROXYCHLOROQUINE SULFATE
     Route: 065
  71. HYDROXYCHLOROQUINE SULFATE [Suspect]
     Active Substance: HYDROXYCHLOROQUINE SULFATE
     Route: 065
  72. HYDROXYCHLOROQUINE SULFATE [Suspect]
     Active Substance: HYDROXYCHLOROQUINE SULFATE
     Route: 065
  73. HYDROXYCHLOROQUINE SULFATE [Suspect]
     Active Substance: HYDROXYCHLOROQUINE SULFATE
     Route: 065
  74. HYDROXYCHLOROQUINE SULFATE [Suspect]
     Active Substance: HYDROXYCHLOROQUINE SULFATE
     Route: 065
  75. HYDROXYCHLOROQUINE SULFATE [Suspect]
     Active Substance: HYDROXYCHLOROQUINE SULFATE
     Route: 048
  76. INFLIXIMAB [Suspect]
     Active Substance: INFLIXIMAB
     Indication: Rheumatoid arthritis
     Route: 065
  77. INFLIXIMAB [Suspect]
     Active Substance: INFLIXIMAB
     Route: 040
  78. INFLIXIMAB [Suspect]
     Active Substance: INFLIXIMAB
     Route: 058
  79. INFLIXIMAB [Suspect]
     Active Substance: INFLIXIMAB
     Route: 043
  80. LAMOTRIGINE [Suspect]
     Active Substance: LAMOTRIGINE
     Indication: Rheumatoid arthritis
     Route: 048
  81. LAMOTRIGINE [Suspect]
     Active Substance: LAMOTRIGINE
     Route: 048
  82. LAMOTRIGINE [Suspect]
     Active Substance: LAMOTRIGINE
     Route: 048
  83. LAMOTRIGINE [Suspect]
     Active Substance: LAMOTRIGINE
     Route: 048
  84. LAMOTRIGINE [Suspect]
     Active Substance: LAMOTRIGINE
     Route: 048
  85. LAMOTRIGINE [Suspect]
     Active Substance: LAMOTRIGINE
     Route: 048
  86. LAMOTRIGINE [Suspect]
     Active Substance: LAMOTRIGINE
     Route: 048
  87. LEFLUNOMIDE [Suspect]
     Active Substance: LEFLUNOMIDE
     Indication: Rheumatoid arthritis
     Route: 065
  88. LEFLUNOMIDE [Suspect]
     Active Substance: LEFLUNOMIDE
     Route: 065
  89. LEFLUNOMIDE [Suspect]
     Active Substance: LEFLUNOMIDE
     Route: 048
  90. LEFLUNOMIDE [Suspect]
     Active Substance: LEFLUNOMIDE
     Route: 048
  91. LEFLUNOMIDE [Suspect]
     Active Substance: LEFLUNOMIDE
     Route: 065
  92. LEVOMILNACIPRAN [Suspect]
     Active Substance: LEVOMILNACIPRAN
     Indication: Product used for unknown indication
     Route: 065
  93. MAGNESIUM CITRATE [Suspect]
     Active Substance: MAGNESIUM CITRATE
     Indication: Product used for unknown indication
     Route: 065
  94. METHOTREXATE [Suspect]
     Active Substance: METHOTREXATE
     Indication: Product used for unknown indication
     Route: 048
  95. METHOTREXATE [Suspect]
     Active Substance: METHOTREXATE
     Route: 048
  96. METHOTREXATE [Suspect]
     Active Substance: METHOTREXATE
     Route: 048
  97. METHOTREXATE [Suspect]
     Active Substance: METHOTREXATE
     Route: 048
  98. METHYLPREDNISOLONE SODIUM SUCCINATE [Suspect]
     Active Substance: METHYLPREDNISOLONE SODIUM SUCCINATE
     Indication: Rheumatoid arthritis
     Route: 065
  99. MYRBETRIQ [Suspect]
     Active Substance: MIRABEGRON
     Indication: Rheumatoid arthritis
     Route: 065
  100. MYRBETRIQ [Suspect]
     Active Substance: MIRABEGRON
     Route: 048
  101. MYRBETRIQ [Suspect]
     Active Substance: MIRABEGRON
     Route: 065
  102. MYRBETRIQ [Suspect]
     Active Substance: MIRABEGRON
     Route: 048
  103. NAPROXEN [Suspect]
     Active Substance: NAPROXEN
     Indication: Rheumatoid arthritis
     Route: 065
  104. NAPROXEN SODIUM [Suspect]
     Active Substance: NAPROXEN SODIUM
     Indication: Rheumatoid arthritis
     Route: 065
  105. NUCALA [Suspect]
     Active Substance: MEPOLIZUMAB
     Indication: Rheumatoid arthritis
     Route: 065
  106. ORENCIA [Suspect]
     Active Substance: ABATACEPT
     Indication: Rheumatoid arthritis
     Route: 040
  107. OXYCODONE TEREPHTHALATE [Suspect]
     Active Substance: OXYCODONE TEREPHTHALATE
     Indication: Rheumatoid arthritis
     Route: 065
  108. PANTOPRAZOLE [Suspect]
     Active Substance: PANTOPRAZOLE
     Indication: Rheumatoid arthritis
     Route: 065
  109. PHENYLEPHRINE HYDROCHLORIDE [Suspect]
     Active Substance: PHENYLEPHRINE HYDROCHLORIDE
     Indication: Rheumatoid arthritis
     Route: 065
  110. PHTHALYLSULFATHIAZOLE [Suspect]
     Active Substance: PHTHALYLSULFATHIAZOLE
     Indication: Rheumatoid arthritis
     Route: 048
  111. PHTHALYLSULFATHIAZOLE [Suspect]
     Active Substance: PHTHALYLSULFATHIAZOLE
     Route: 048
  112. PREDNISONE [Suspect]
     Active Substance: PREDNISONE
     Indication: Rheumatoid arthritis
     Route: 048
  113. PREDNISONE [Suspect]
     Active Substance: PREDNISONE
     Route: 048
  114. PREDNISONE [Suspect]
     Active Substance: PREDNISONE
     Route: 048
  115. PREDNISONE [Suspect]
     Active Substance: PREDNISONE
     Route: 065
  116. PREDNISONE [Suspect]
     Active Substance: PREDNISONE
     Route: 065
  117. PREDNISONE [Suspect]
     Active Substance: PREDNISONE
     Route: 065
  118. PSEUDOEPHEDRINE HYDROCHLORIDE [Suspect]
     Active Substance: PSEUDOEPHEDRINE HYDROCHLORIDE
     Indication: Rheumatoid arthritis
     Route: 065
  119. PSEUDOEPHEDRINE HYDROCHLORIDE [Suspect]
     Active Substance: PSEUDOEPHEDRINE HYDROCHLORIDE
     Route: 065
  120. RAMIPRIL [Suspect]
     Active Substance: RAMIPRIL
     Indication: Rheumatoid arthritis
     Route: 016
  121. RAMIPRIL [Suspect]
     Active Substance: RAMIPRIL
     Route: 040
  122. RANITIDINE HYDROCHLORIDE [Suspect]
     Active Substance: RANITIDINE HYDROCHLORIDE
     Indication: Rheumatoid arthritis
     Route: 065
  123. CETIRIZINE HYDROCHLORIDE\PSEUDOEPHEDRINE HYDROCHLORIDE [Suspect]
     Active Substance: CETIRIZINE HYDROCHLORIDE\PSEUDOEPHEDRINE HYDROCHLORIDE
     Indication: Rheumatoid arthritis
     Route: 065
  124. CETIRIZINE HYDROCHLORIDE\PSEUDOEPHEDRINE HYDROCHLORIDE [Suspect]
     Active Substance: CETIRIZINE HYDROCHLORIDE\PSEUDOEPHEDRINE HYDROCHLORIDE
     Indication: Off label use
     Route: 065
  125. CETIRIZINE HYDROCHLORIDE\PSEUDOEPHEDRINE HYDROCHLORIDE [Suspect]
     Active Substance: CETIRIZINE HYDROCHLORIDE\PSEUDOEPHEDRINE HYDROCHLORIDE
     Route: 065
  126. DIETARY SUPPLEMENT\HERBALS [Suspect]
     Active Substance: DIETARY SUPPLEMENT\HERBALS
     Indication: Rheumatoid arthritis
     Route: 065
  127. SARILUMAB [Suspect]
     Active Substance: SARILUMAB
     Indication: Rheumatoid arthritis
     Route: 065
  128. GOLD SODIUM THIOMALATE [Suspect]
     Active Substance: GOLD SODIUM THIOMALATE
     Indication: Rheumatoid arthritis
     Route: 065
  129. SULFASALAZINE [Suspect]
     Active Substance: SULFASALAZINE
     Indication: Product used for unknown indication
     Route: 065
  130. SULFASALAZINE [Suspect]
     Active Substance: SULFASALAZINE
     Route: 065
  131. SULFASALAZINE [Suspect]
     Active Substance: SULFASALAZINE
     Route: 065
  132. SULFASALAZINE [Suspect]
     Active Substance: SULFASALAZINE
     Route: 058
  133. SULFASALAZINE [Suspect]
     Active Substance: SULFASALAZINE
     Route: 058
  134. SULFASALAZINE [Suspect]
     Active Substance: SULFASALAZINE
     Route: 048
  135. SULFASALAZINE [Suspect]
     Active Substance: SULFASALAZINE
     Route: 048
  136. SULFASALAZINE [Suspect]
     Active Substance: SULFASALAZINE
     Route: 048
  137. SULFASALAZINE [Suspect]
     Active Substance: SULFASALAZINE
     Route: 058
  138. SULFASALAZINE [Suspect]
     Active Substance: SULFASALAZINE
     Route: 048
  139. SULFASALAZINE [Suspect]
     Active Substance: SULFASALAZINE
     Route: 048
  140. SULFASALAZINE [Suspect]
     Active Substance: SULFASALAZINE
     Route: 048
  141. SULFASALAZINE [Suspect]
     Active Substance: SULFASALAZINE
     Route: 048
  142. SULFASALAZINE [Suspect]
     Active Substance: SULFASALAZINE
     Route: 065
  143. TOCILIZUMAB [Suspect]
     Active Substance: TOCILIZUMAB
     Indication: Rheumatoid arthritis
     Route: 040
  144. TOCILIZUMAB [Suspect]
     Active Substance: TOCILIZUMAB
     Route: 040
  145. TOCILIZUMAB [Suspect]
     Active Substance: TOCILIZUMAB
     Route: 065
  146. TOCILIZUMAB [Suspect]
     Active Substance: TOCILIZUMAB
     Route: 065
  147. TOCILIZUMAB [Suspect]
     Active Substance: TOCILIZUMAB
     Route: 040
  148. TOCILIZUMAB [Suspect]
     Active Substance: TOCILIZUMAB
     Route: 058
  149. TOCILIZUMAB [Suspect]
     Active Substance: TOCILIZUMAB
     Route: 040
  150. TOCILIZUMAB [Suspect]
     Active Substance: TOCILIZUMAB
     Route: 040
  151. TOFACITINIB [Suspect]
     Active Substance: TOFACITINIB
     Indication: Rheumatoid arthritis
     Route: 065
  152. TOFACITINIB [Suspect]
     Active Substance: TOFACITINIB
     Route: 065
  153. TOFACITINIB [Suspect]
     Active Substance: TOFACITINIB
     Route: 065
  154. TOPIRAMATE [Suspect]
     Active Substance: TOPIRAMATE
     Indication: Rheumatoid arthritis
     Route: 065
  155. TOPIRAMATE [Suspect]
     Active Substance: TOPIRAMATE
     Indication: Migraine
     Route: 065
  156. TOPIRAMATE [Suspect]
     Active Substance: TOPIRAMATE
     Route: 065
  157. TOPIRAMATE [Suspect]
     Active Substance: TOPIRAMATE
     Route: 065
  158. VITAMIN C [Suspect]
     Active Substance: ASCORBIC ACID
     Indication: Product used for unknown indication
     Route: 065
  159. USTEKINUMAB [Suspect]
     Active Substance: USTEKINUMAB
     Indication: Product used for unknown indication
     Route: 065
  160. USTEKINUMAB [Suspect]
     Active Substance: USTEKINUMAB
     Route: 058
  161. RITUXIMAB [Suspect]
     Active Substance: RITUXIMAB
     Indication: Rheumatoid arthritis
     Route: 058
  162. RITUXIMAB [Suspect]
     Active Substance: RITUXIMAB
     Route: 040
  163. RITUXIMAB [Suspect]
     Active Substance: RITUXIMAB
     Route: 043
  164. RITUXIMAB [Suspect]
     Active Substance: RITUXIMAB
     Route: 065

REACTIONS (15)
  - Gastrointestinal disorder [Fatal]
  - Gastrooesophageal reflux disease [Fatal]
  - General physical health deterioration [Fatal]
  - Glossodynia [Fatal]
  - Grip strength decreased [Fatal]
  - Hand deformity [Fatal]
  - Headache [Fatal]
  - Helicobacter infection [Fatal]
  - Hepatic cirrhosis [Fatal]
  - Hepatic enzyme increased [Fatal]
  - Hypercholesterolaemia [Fatal]
  - Hypersensitivity [Fatal]
  - Hypertension [Fatal]
  - Ill-defined disorder [Fatal]
  - Impaired healing [Fatal]
